FAERS Safety Report 12287469 (Version 1)
Quarter: 2016Q2

REPORT INFORMATION
  Report Type: Not Available
  Country: IN (occurrence: IN)
  Receive Date: 20160420
  Receipt Date: 20160420
  Transmission Date: 20160815
  Serious: Yes (Life-Threatening)
  Sender: FDA-Public Use
  Company Number: IN-ANIPHARMA-2016-IN-000010

PATIENT
  Age: 27 Year
  Sex: Female

DRUGS (2)
  1. CEFUROXIME AXETIL (NON-SPECIFIC) [Suspect]
     Active Substance: CEFUROXIME AXETIL
     Route: 042
  2. UNSPECIFIED MEDICATION [Suspect]
     Active Substance: UNSPECIFIED INGREDIENT

REACTIONS (2)
  - Anaphylactic reaction [Unknown]
  - Stress cardiomyopathy [Unknown]
